FAERS Safety Report 12746508 (Version 1)
Quarter: 2016Q3

REPORT INFORMATION
  Report Type: Spontaneous
  Country: US (occurrence: US)
  Receive Date: 20160915
  Receipt Date: 20160915
  Transmission Date: 20161109
  Serious: Yes (Other)
  Sender: FDA-Public Use
  Company Number: None

PATIENT
  Age: 66 Year
  Sex: Male
  Weight: 112.5 kg

DRUGS (18)
  1. PLAQUENIL [Suspect]
     Active Substance: HYDROXYCHLOROQUINE SULFATE
     Indication: SJOGREN^S SYNDROME
     Route: 048
     Dates: start: 20160712, end: 20160915
  2. RESTATES [Concomitant]
  3. VITAMIN D3 [Concomitant]
     Active Substance: CHOLECALCIFEROL
  4. ZINC [Concomitant]
     Active Substance: ZINC\ZINC CHLORIDE
  5. ATENOLOL. [Concomitant]
     Active Substance: ATENOLOL
  6. MULTI-VITAMIN [Concomitant]
     Active Substance: .ALPHA.-TOCOPHEROL ACETATE, DL-\ASCORBIC ACID\CYANOCOBALAMIN\FLUORIDE ION\FOLIC ACID\NIACIN\PYRIDOXINE\RIBOFLAVIN\THIAMINE\VITAMIN A\VITAMIN D
  7. VICTOZA [Concomitant]
     Active Substance: LIRAGLUTIDE
  8. PLAQUENIL [Suspect]
     Active Substance: HYDROXYCHLOROQUINE SULFATE
     Indication: SYSTEMIC LUPUS ERYTHEMATOSUS
     Route: 048
     Dates: start: 20160712, end: 20160915
  9. ESCOTALIPHRAM [Concomitant]
  10. LANTUS [Concomitant]
     Active Substance: INSULIN GLARGINE
  11. ALPHA-LIPOID ACID [Concomitant]
  12. POTASSIUM [Concomitant]
     Active Substance: POTASSIUM
  13. B-COMPLEX SUPPLEMENT [Concomitant]
  14. ACE INHIBITOR [Concomitant]
     Active Substance: UNSPECIFIED INGREDIENT
  15. ASPIRIN. [Concomitant]
     Active Substance: ASPIRIN
  16. COQ10 [Concomitant]
     Active Substance: UBIDECARENONE
  17. TURMERIC [Concomitant]
     Active Substance: TURMERIC
  18. MAGNESIUM [Concomitant]
     Active Substance: MAGNESIUM

REACTIONS (3)
  - Blood creatinine increased [None]
  - Gastrointestinal disorder [None]
  - Contraindicated product administered [None]

NARRATIVE: CASE EVENT DATE: 20160915
